FAERS Safety Report 22596699 (Version 3)
Quarter: 2023Q4

REPORT INFORMATION
  Report Type: Spontaneous
  Country: US (occurrence: US)
  Receive Date: 20230613
  Receipt Date: 20231004
  Transmission Date: 20240110
  Serious: Yes (Other)
  Sender: FDA-Public Use
  Company Number: US-BRISTOL-MYERS SQUIBB COMPANY-2023-083043

PATIENT
  Age: 69 Year
  Sex: Female

DRUGS (7)
  1. REVLIMID [Suspect]
     Active Substance: LENALIDOMIDE
     Indication: Follicular lymphoma
     Dosage: D1-21, Q28D
     Route: 048
     Dates: start: 20230517
  2. METOPROLOL TARTRATE [Concomitant]
     Active Substance: METOPROLOL TARTRATE
     Indication: Atrial flutter
     Dosage: DAILY
     Route: 048
     Dates: start: 20220930
  3. SERTRALINE [Concomitant]
     Active Substance: SERTRALINE HYDROCHLORIDE
     Indication: Anxiety
     Dosage: DAILY
     Route: 048
     Dates: start: 20110406
  4. GLIPIZIDE [Concomitant]
     Active Substance: GLIPIZIDE
     Indication: Diabetes mellitus
     Dosage: SR DAILY
     Route: 048
     Dates: start: 20230508
  5. ATORVASTATIN [Concomitant]
     Active Substance: ATORVASTATIN
     Indication: Diabetes mellitus
     Dosage: DAILY
     Route: 048
     Dates: start: 20111117
  6. APIXABAN [Concomitant]
     Active Substance: APIXABAN
     Indication: Atrial flutter
     Dosage: BID
     Route: 048
     Dates: start: 20230508
  7. AMLODIPINE [Concomitant]
     Active Substance: AMLODIPINE BESYLATE
     Indication: Hypertension
     Dosage: DAILY
     Route: 048
     Dates: start: 20230331

REACTIONS (2)
  - Neutropenia [Recovered/Resolved]
  - Monocyte count decreased [Unknown]

NARRATIVE: CASE EVENT DATE: 20230517
